FAERS Safety Report 6160943-8 (Version None)
Quarter: 2009Q2

REPORT INFORMATION
  Report Type: 
  Country: None (occurrence: None)
  Receive Date: 20090417
  Receipt Date: 20090417
  Transmission Date: 20091009
  Serious: Yes (Other)
  Sender: FDA-Public Use
  Company Number: None

PATIENT
  Sex: Male
  Weight: 73.4827 kg

DRUGS (2)
  1. LEXAPRO [Suspect]
     Indication: ANXIETY
     Dosage: 10MG QD PO
     Route: 048
     Dates: start: 20090301, end: 20090319
  2. LEXAPRO [Suspect]
     Indication: DEPRESSION
     Dosage: 10MG QD PO
     Route: 048
     Dates: start: 20090301, end: 20090319

REACTIONS (1)
  - BLOOD SODIUM DECREASED [None]
